FAERS Safety Report 22164631 (Version 1)
Quarter: 2023Q2

REPORT INFORMATION
  Report Type: Other
  Country: US (occurrence: None)
  Receive Date: 20230403
  Receipt Date: 20230403
  Transmission Date: 20230722
  Serious: Yes (Other)
  Sender: FDA-Public Use
  Company Number: US-ROCHE-3319362

PATIENT
  Age: 56 Year
  Sex: Female

DRUGS (2)
  1. ACTEMRA [Suspect]
     Active Substance: TOCILIZUMAB
     Indication: Rheumatoid arthritis
     Route: 058
  2. ACTEMRA [Suspect]
     Active Substance: TOCILIZUMAB

REACTIONS (8)
  - Diabetic glaucoma [Unknown]
  - Cauda equina syndrome [Unknown]
  - Paralysis [Unknown]
  - Urinary bladder rupture [Unknown]
  - Fatigue [Unknown]
  - Ill-defined disorder [Unknown]
  - Movement disorder [Unknown]
  - Product dose omission issue [Unknown]
